FAERS Safety Report 23403251 (Version 3)
Quarter: 2024Q1

REPORT INFORMATION
  Report Type: Other
  Country: BE (occurrence: None)
  Receive Date: 20240116
  Receipt Date: 20240207
  Transmission Date: 20240410
  Serious: No
  Sender: FDA-Public Use
  Company Number: BE-ROCHE-3440752

PATIENT
  Age: 68 Year
  Sex: Female
  Weight: 84 kg

DRUGS (10)
  1. ATEZOLIZUMAB [Suspect]
     Active Substance: ATEZOLIZUMAB
     Indication: Non-small cell lung cancer metastatic
     Route: 041
     Dates: start: 20230511
  2. ASPIRIN [Concomitant]
     Active Substance: ASPIRIN
     Dates: start: 20200214
  3. TROXERUTIN [Concomitant]
     Active Substance: TROXERUTIN
     Dates: start: 2020
  4. CLOTIAZEPAM [Concomitant]
     Active Substance: CLOTIAZEPAM
     Dates: start: 202302
  5. FOLIC ACID [Concomitant]
     Active Substance: FOLIC ACID
     Dates: start: 20230415
  6. GLYCOPYRRONIUM\INDACATEROL [Concomitant]
     Active Substance: GLYCOPYRRONIUM\INDACATEROL
     Dates: start: 20200519
  7. FENOTEROL HYDROBROMIDE [Concomitant]
     Active Substance: FENOTEROL HYDROBROMIDE
     Dates: start: 2020
  8. OXYGEN [Concomitant]
     Active Substance: OXYGEN
     Dates: start: 2020
  9. DAFALGAN [Concomitant]
     Active Substance: ACETAMINOPHEN
     Dates: start: 20230221
  10. VENORUTON (BELGIUM) [Concomitant]
     Dates: start: 20231011

REACTIONS (5)
  - Lymphocyte count decreased [Recovered/Resolved]
  - Red cell distribution width increased [Recovered/Resolved]
  - Hypocalcaemia [Recovered/Resolved]
  - Arthralgia [Recovered/Resolved]
  - Dry skin [Not Recovered/Not Resolved]

NARRATIVE: CASE EVENT DATE: 20230830
